FAERS Safety Report 8909135 (Version 1)
Quarter: 2012Q4

REPORT INFORMATION
  Report Type: 
  Country: US (occurrence: US)
  Receive Date: 20121113
  Receipt Date: 20121113
  Transmission Date: 20130627
  Serious: No
  Sender: FDA-Public Use
  Company Number: US-AMGEN-USASP2012011303

PATIENT
  Age: 52 Year
  Sex: Female
  Weight: 67.57 kg

DRUGS (8)
  1. ENBREL [Suspect]
     Indication: PRODUCT USED FOR UNKNOWN INDICATION
     Dosage: 25 mg, 2 times/wk
     Route: 058
  2. METHOTREXATE [Concomitant]
     Dosage: 2.5 mg, UNK
  3. VALTREX [Concomitant]
     Dosage: 1 g, UNK
  4. MECLIZINE                          /00072801/ [Concomitant]
     Dosage: 25 mg, UNK
  5. FOLIC ACID [Concomitant]
  6. DYRENIUM [Concomitant]
     Dosage: 50 mg, UNK
  7. MULTIVITAMIN                       /00097801/ [Concomitant]
  8. IRON [Concomitant]

REACTIONS (2)
  - Injection site pruritus [Unknown]
  - Injection site erythema [Unknown]
